FAERS Safety Report 22327475 (Version 1)
Quarter: 2023Q2

REPORT INFORMATION
  Report Type: Spontaneous
  Country: US (occurrence: US)
  Receive Date: 20230516
  Receipt Date: 20230516
  Transmission Date: 20230722
  Serious: No
  Sender: FDA-Public Use
  Company Number: US-RADIUS HEALTH INC.-2023US000572

PATIENT
  Age: 54 Year
  Sex: Female

DRUGS (1)
  1. TYMLOS [Suspect]
     Active Substance: ABALOPARATIDE
     Indication: Senile osteoporosis
     Dosage: 80 MICROGRAM, QD
     Route: 058
     Dates: start: 202212

REACTIONS (9)
  - Dermatitis [Unknown]
  - Skin irritation [Unknown]
  - Injection site urticaria [Unknown]
  - Skin discolouration [Unknown]
  - Swelling [Unknown]
  - Pruritus [Unknown]
  - Hypersensitivity [Unknown]
  - Injection site pruritus [Unknown]
  - Injection site erythema [Unknown]

NARRATIVE: CASE EVENT DATE: 20230401
